FAERS Safety Report 17802486 (Version 1)
Quarter: 2020Q2

REPORT INFORMATION
  Report Type: Spontaneous
  Country: US (occurrence: US)
  Receive Date: 20200518
  Receipt Date: 20200518
  Transmission Date: 20200714
  Serious: Yes (Hospitalization)
  Sender: FDA-Public Use
  Company Number: None

PATIENT
  Age: 62 Year
  Sex: Male

DRUGS (18)
  1. ALBUTEROL AER [Concomitant]
  2. SPIRONOLACT [Concomitant]
     Active Substance: SPIRONOLACTONE
  3. HUMIRA [Suspect]
     Active Substance: ADALIMUMAB
     Indication: CROHN^S DISEASE
     Dosage: ?          OTHER DOSE:1 PEN; Q2W SQ?
     Route: 058
     Dates: start: 20180614
  4. AMITRIPYLYN [Concomitant]
  5. DIGOXIN. [Concomitant]
     Active Substance: DIGOXIN
  6. FUROSEMIDE. [Concomitant]
     Active Substance: FUROSEMIDE
  7. PANTOPRAZOLE [Concomitant]
     Active Substance: PANTOPRAZOLE
  8. TAMSULOSIN [Concomitant]
     Active Substance: TAMSULOSIN
  9. TRELEGY ELLIPTA [Concomitant]
     Active Substance: FLUTICASONE FUROATE\UMECLIDINIUM BROMIDE\VILANTEROL TRIFENATATE
  10. PRADAXA [Concomitant]
     Active Substance: DABIGATRAN ETEXILATE MESYLATE
  11. VERAPAMIL [Concomitant]
     Active Substance: VERAPAMIL HYDROCHLORIDE
  12. SPIRIVA [Concomitant]
     Active Substance: TIOTROPIUM BROMIDE MONOHYDRATE
  13. METOPROL SUC [Concomitant]
  14. AZATHIOPRINE. [Concomitant]
     Active Substance: AZATHIOPRINE
  15. BREO ELLIPTA [Concomitant]
     Active Substance: FLUTICASONE FUROATE\VILANTEROL TRIFENATATE
  16. ZAFIRLUKAST. [Concomitant]
     Active Substance: ZAFIRLUKAST
  17. FINASTERIDE. [Concomitant]
     Active Substance: FINASTERIDE
  18. TOUJEO SOLO [Concomitant]

REACTIONS (1)
  - Urinary tract infection [None]

NARRATIVE: CASE EVENT DATE: 20200504
